FAERS Safety Report 8649977 (Version 2)
Quarter: 2012Q4

REPORT INFORMATION
  Report Type: 
  Country: US (occurrence: US)
  Receive Date: 20120705
  Receipt Date: 20120914
  Transmission Date: 20130627
  Serious: Yes (Life-Threatening, Hospitalization, Other)
  Sender: FDA-Public Use
  Company Number: US-ASTRAZENECA-2012SE43352

PATIENT
  Age: 64 Year
  Sex: Male
  Weight: 81.2 kg

DRUGS (14)
  1. NEXIUM [Suspect]
     Route: 048
  2. METOPROLOL [Concomitant]
  3. EFFIENT [Concomitant]
  4. NITROGLYCERIN [Concomitant]
     Route: 060
  5. COLACE [Concomitant]
  6. ASPIRIN [Concomitant]
  7. ULTRAM [Concomitant]
  8. TRAZODONE [Concomitant]
  9. PREDNISONE [Concomitant]
  10. PRAVACHOL [Concomitant]
  11. NORVASC [Concomitant]
  12. METFORMIN [Concomitant]
  13. MULTIVITAMINS [Concomitant]
     Dosage: DAILY
  14. CYMBALTA [Concomitant]

REACTIONS (9)
  - Acute myocardial infarction [Unknown]
  - Coronary artery occlusion [Unknown]
  - Diastolic dysfunction [Unknown]
  - Ejection fraction decreased [Recovered/Resolved]
  - Diabetes mellitus [Unknown]
  - Hypertension [Unknown]
  - Gastrooesophageal reflux disease [Unknown]
  - Anxiety [Unknown]
  - Depression [Unknown]
